FAERS Safety Report 5580732-2 (Version None)
Quarter: 2007Q4

REPORT INFORMATION
  Report Type: 
  Country: None (occurrence: None)
  Receive Date: 20071228
  Receipt Date: 20071221
  Transmission Date: 20080405
  Serious: Yes (Hospitalization)
  Sender: FDA-Public Use
  Company Number: 2007-05902

PATIENT
  Age: 45 Year
  Sex: Male

DRUGS (2)
  1. FIORICET [Suspect]
     Indication: DRUG USE FOR UNKNOWN INDICATION
     Dosage: 10 G, DAILY X 2 MONTHS, ORAL
     Route: 048
     Dates: start: 20070101, end: 20070101
  2. ALCOHOL(ETHANOL) [Suspect]
     Indication: ALCOHOL ABUSE
     Dosage: ORAL
     Route: 048

REACTIONS (5)
  - ARTERIAL THROMBOSIS LIMB [None]
  - HEPATIC FAILURE [None]
  - HYPERCOAGULATION [None]
  - OVERDOSE [None]
  - PERIPHERAL ISCHAEMIA [None]
